FAERS Safety Report 18266489 (Version 11)
Quarter: 2021Q4

REPORT INFORMATION
  Report Type: Report from Study
  Country: FR (occurrence: FR)
  Receive Date: 20200915
  Receipt Date: 20211026
  Transmission Date: 20220303
  Serious: Yes (Hospitalization)
  Sender: FDA-Public Use
  Company Number: NVSC2020FR246833

PATIENT
  Age: 57 Year
  Sex: Female
  Weight: 57 kg

DRUGS (19)
  1. ALPELISIB [Suspect]
     Active Substance: ALPELISIB
     Indication: Meningioma
     Dosage: 100 MG
     Route: 048
     Dates: start: 20200709, end: 20200807
  2. ALPELISIB [Suspect]
     Active Substance: ALPELISIB
     Dosage: UNK
     Route: 065
     Dates: start: 20201020, end: 20201213
  3. ALPELISIB [Suspect]
     Active Substance: ALPELISIB
     Dosage: 100 MG
     Route: 048
     Dates: start: 20201223, end: 20201231
  4. TRAMETINIB [Suspect]
     Active Substance: TRAMETINIB
     Indication: Meningioma
     Dosage: 1.5 MG
     Route: 048
     Dates: start: 20200709, end: 20200807
  5. TRAMETINIB [Suspect]
     Active Substance: TRAMETINIB
     Dosage: UNK
     Route: 048
     Dates: start: 20201020, end: 20201213
  6. TRAMETINIB [Suspect]
     Active Substance: TRAMETINIB
     Dosage: 1.5 MG
     Route: 048
     Dates: start: 20201223, end: 20201231
  7. CETIRIZINE HYDROCHLORIDE [Concomitant]
     Active Substance: CETIRIZINE HYDROCHLORIDE
     Indication: Rash
     Dosage: UNK
     Route: 065
     Dates: start: 20200806
  8. METFORMIN HYDROCHLORIDE [Concomitant]
     Active Substance: METFORMIN HYDROCHLORIDE
     Indication: Diabetes mellitus
     Dosage: UNK
     Route: 065
     Dates: start: 20201214, end: 20210101
  9. VASTEN [Concomitant]
     Indication: Prophylaxis
     Dosage: 10 MG, QD
     Route: 065
  10. ALPRAZOLAM [Concomitant]
     Active Substance: ALPRAZOLAM
     Indication: Prophylaxis
     Dosage: 0.25 MG, QD
     Route: 065
  11. CANDESARTAN [Concomitant]
     Active Substance: CANDESARTAN
     Indication: Prophylaxis
     Dosage: 16 MG, QD
     Route: 065
  12. FUROSEMIDE [Concomitant]
     Active Substance: FUROSEMIDE
     Indication: Prophylaxis
     Dosage: 20 MG, QD
     Route: 065
  13. PREDNISONE [Concomitant]
     Active Substance: PREDNISONE
     Indication: Prophylaxis
     Dosage: 60 MG, QD (MORNING)
     Route: 065
  14. ESOMEPRAZOLE [Concomitant]
     Active Substance: ESOMEPRAZOLE
     Indication: Prophylaxis
     Dosage: 20 MG, QD
     Route: 065
  15. BACTRIM [Concomitant]
     Active Substance: SULFAMETHOXAZOLE\TRIMETHOPRIM
     Indication: Prophylaxis
     Dosage: UNK, QD
     Route: 065
  16. LEUCOVORIN CALCIUM [Concomitant]
     Active Substance: LEUCOVORIN CALCIUM
     Indication: Prophylaxis
     Dosage: 25 MG, QW
     Route: 065
  17. VOGALENE [Concomitant]
     Active Substance: METOPIMAZINE
     Indication: Prophylaxis
     Dosage: UNK, PRN
     Route: 065
  18. KEPPRA [Concomitant]
     Active Substance: LEVETIRACETAM
     Indication: Prophylaxis
     Dosage: UNK
     Route: 065
  19. FLUOXETINE [Concomitant]
     Active Substance: FLUOXETINE HYDROCHLORIDE
     Indication: Prophylaxis
     Dosage: 20 MG, QD
     Route: 065

REACTIONS (6)
  - Pyelonephritis [Recovered/Resolved]
  - Hepatic cytolysis [Recovered/Resolved]
  - Transaminases increased [Recovered/Resolved]
  - Hyperglycaemia [Recovered/Resolved with Sequelae]
  - Nausea [Recovered/Resolved]
  - Headache [Recovered/Resolved]

NARRATIVE: CASE EVENT DATE: 20200807
